FAERS Safety Report 8950015 (Version 2)
Quarter: 2013Q1

REPORT INFORMATION
  Report Type: Spontaneous
  Country: US (occurrence: US)
  Receive Date: 20121205
  Receipt Date: 20130201
  Transmission Date: 20140127
  Serious: No
  Sender: FDA-Public Use
  Company Number: US-ASTRAZENECA-2012SE87885

PATIENT
  Age: 64 Year
  Sex: Female
  Weight: 117.5 kg

DRUGS (4)
  1. SYMBICORT PMDI [Suspect]
     Indication: ASTHMA
     Dosage: UNKNOWN
     Route: 055
     Dates: start: 2010
  2. SYMBICORT PMDI [Suspect]
     Indication: ASTHMA
     Dosage: 80/4.5 MCG 1 PUFFS,DAILY
     Route: 055
     Dates: start: 201201
  3. VENTOLIN [Concomitant]
     Indication: ASTHMA
     Dosage: AS NEEDED
     Route: 045
     Dates: start: 2010
  4. MATZIM LA [Concomitant]
     Indication: ATRIAL FIBRILLATION
     Route: 048
     Dates: start: 2010

REACTIONS (4)
  - Wheezing [Recovered/Resolved]
  - Chest pain [Recovered/Resolved]
  - Atrial fibrillation [Unknown]
  - Intentional drug misuse [Unknown]
